FAERS Safety Report 6054117-9 (Version None)
Quarter: 2009Q1

REPORT INFORMATION
  Report Type: 
  Country: None (occurrence: None)
  Receive Date: 20090127
  Receipt Date: 20090115
  Transmission Date: 20090719
  Serious: Yes (Hospitalization)
  Sender: FDA-Public Use
  Company Number: FR-PFIZER INC-2009157187

PATIENT

DRUGS (4)
  1. GABAPENTIN [Suspect]
     Route: 048
     Dates: end: 20081101
  2. LANSOPRAZOLE [Suspect]
     Dosage: 15 MG, 1X/DAY
     Route: 048
     Dates: end: 20081101
  3. MIZOLASTINE [Suspect]
     Dosage: 10 MG, 1X/DAY
     Route: 048
     Dates: end: 20080101
  4. IRBESARTAN [Suspect]
     Dosage: 1 DF, 1X/DAY
     Route: 048

REACTIONS (1)
  - SKIN HYPERPIGMENTATION [None]
